FAERS Safety Report 6124105-2 (Version None)
Quarter: 2009Q1

REPORT INFORMATION
  Report Type: 
  Country: None (occurrence: None)
  Receive Date: 20090319
  Receipt Date: 20090309
  Transmission Date: 20090719
  Serious: Yes (Disabling)
  Sender: FDA-Public Use
  Company Number: JP-SANOFI-SYNTHELABO-A01200901013

PATIENT
  Sex: Male
  Weight: 55 kg

DRUGS (7)
  1. KYTRIL [Concomitant]
     Indication: PREMEDICATION
     Route: 042
     Dates: start: 20060412, end: 20060607
  2. SEROTONE [Concomitant]
     Indication: PREMEDICATION
     Route: 042
     Dates: start: 20051207, end: 20060329
  3. DEXAMETHASONE PALMITATE [Concomitant]
     Indication: PREMEDICATION
     Route: 042
     Dates: start: 20051207, end: 20060607
  4. FLUOROURACIL [Concomitant]
     Indication: COLON CANCER
     Dosage: 620MG/BODY (400MG/M2) IN BOLUS THEN 930MG/BODY (600MG/M2) AS CONTINUOUS INFUSION
     Route: 040
     Dates: start: 20060607, end: 20060607
  5. FLUOROURACIL [Concomitant]
     Route: 041
     Dates: start: 20060607, end: 20060608
  6. ISOVORIN [Concomitant]
     Indication: COLON CANCER
     Route: 041
     Dates: start: 20060607, end: 20060608
  7. ELPLAT [Suspect]
     Indication: COLON CANCER
     Route: 041
     Dates: start: 20060607, end: 20060607

REACTIONS (1)
  - NEUROPATHY PERIPHERAL [None]
